FAERS Safety Report 20140149 (Version 2)
Quarter: 2021Q4

REPORT INFORMATION
  Report Type: Spontaneous
  Country: JP (occurrence: None)
  Receive Date: 20211202
  Receipt Date: 20211222
  Transmission Date: 20220304
  Serious: Yes (Hospitalization, Disabling, Other)
  Sender: FDA-Public Use
  Company Number: 2021A836479

PATIENT
  Age: 42 Year
  Sex: Male

DRUGS (3)
  1. DAPAGLIFLOZIN [Suspect]
     Active Substance: DAPAGLIFLOZIN
     Indication: Chronic kidney disease
     Dosage: DOSE UNKNOWN
     Route: 048
     Dates: start: 20210929, end: 20211112
  2. AMLODIPINE [Concomitant]
     Active Substance: AMLODIPINE BESYLATE
     Dosage: DOSE UNKNOWN
     Route: 065
  3. FLUVASTATIN [Concomitant]
     Active Substance: FLUVASTATIN SODIUM
     Dosage: DOSE UNKNOWN
     Route: 065

REACTIONS (3)
  - Cerebral infarction [Recovered/Resolved with Sequelae]
  - Melaena [Unknown]
  - Aphasia [Unknown]

NARRATIVE: CASE EVENT DATE: 20211111
